FAERS Safety Report 7407234-2 (Version None)
Quarter: 2011Q2

REPORT INFORMATION
  Report Type: 
  Country: None (occurrence: None)
  Receive Date: 20110411
  Receipt Date: 20110321
  Transmission Date: 20111010
  Serious: No
  Sender: FDA-Public Use
  Company Number: US-B.I. PHARMACEUTICALS,INC./RIDGEFIELD-2011-BP-08752BP

PATIENT
  Sex: Female

DRUGS (3)
  1. LOSARTAN POTASSIUM AND HYDROCHLOROTHIAZIDE [Concomitant]
     Indication: HYPERTENSION
     Route: 048
     Dates: start: 19720101
  2. ZANTAC 75 [Suspect]
     Indication: HYPERCHLORHYDRIA
     Route: 048
     Dates: start: 20100701
  3. NAPROSYN [Concomitant]
     Indication: ARTHRITIS
     Dosage: 500 MG
     Route: 048

REACTIONS (1)
  - REGURGITATION [None]
